FAERS Safety Report 24095641 (Version 1)
Quarter: 2024Q3

REPORT INFORMATION
  Report Type: Spontaneous
  Country: IN (occurrence: IN)
  Receive Date: 20240716
  Receipt Date: 20240716
  Transmission Date: 20241016
  Serious: Yes (Life-Threatening, Hospitalization)
  Sender: MYLAN
  Company Number: IN-MYLANLABS-2024M1065259

PATIENT
  Age: 25 Year
  Sex: Female

DRUGS (2)
  1. MOXIFLOXACIN [Suspect]
     Active Substance: MOXIFLOXACIN
     Indication: Typhoid fever
     Dosage: 500 MILLIGRAM, QD
     Route: 048
  2. CEFTRIAXONE [Suspect]
     Active Substance: CEFTRIAXONE\CEFTRIAXONE SODIUM
     Indication: Typhoid fever
     Dosage: 1 GRAM, BID (EVERY 12?HOURS)
     Route: 065

REACTIONS (1)
  - Drug ineffective [Unknown]
